FAERS Safety Report 7643672-0 (Version None)
Quarter: 2011Q3

REPORT INFORMATION
  Report Type: 
  Country: None (occurrence: None)
  Receive Date: 20110729
  Receipt Date: 20110721
  Transmission Date: 20111222
  Serious: Yes (Other)
  Sender: FDA-Public Use
  Company Number: PHHY2011AU50553

PATIENT
  Sex: Female

DRUGS (1)
  1. ZOMETA [Suspect]
     Indication: BREAST CANCER METASTATIC
     Dosage: 4 MG, 4 WEEKLY
     Route: 042
     Dates: start: 20100804, end: 20101006

REACTIONS (7)
  - SKIN LESION [None]
  - NAUSEA [None]
  - ARTHRALGIA [None]
  - BEDRIDDEN [None]
  - LYMPHOEDEMA [None]
  - RASH [None]
  - MYALGIA [None]
